FAERS Safety Report 12678211 (Version 1)
Quarter: 2016Q3

REPORT INFORMATION
  Report Type: Report from Study
  Country: ES (occurrence: ES)
  Receive Date: 20160823
  Receipt Date: 20160823
  Transmission Date: 20161109
  Serious: Yes (Hospitalization)
  Sender: FDA-Public Use
  Company Number: PHHO2010ES13163

PATIENT
  Age: 59 Year
  Sex: Female
  Weight: 62.3 kg

DRUGS (10)
  1. COMPARATOR VINORELBINE [Suspect]
     Active Substance: VINORELBINE TARTRATE
     Dosage: UNK
     Route: 042
     Dates: start: 20100921, end: 20100928
  2. VITALUX [Concomitant]
     Active Substance: MINERALS\VITAMINS
     Indication: DERMATITIS ATOPIC
  3. COMPARATOR VINORELBINE [Suspect]
     Active Substance: VINORELBINE TARTRATE
     Dosage: 32 MG, UNK
     Route: 042
     Dates: start: 20101013
  4. COMPARATOR TRASTUZUMAB [Suspect]
     Active Substance: TRASTUZUMAB
     Dosage: UNK
     Route: 042
     Dates: start: 20100914, end: 20100928
  5. AFINITOR [Suspect]
     Active Substance: EVEROLIMUS
     Dosage: 5 MG, QD
     Route: 048
     Dates: start: 20100914, end: 20100928
  6. AFINITOR [Suspect]
     Active Substance: EVEROLIMUS
     Dosage: 5 MG, QD
     Route: 048
     Dates: start: 20101013
  7. COMPARATOR VINORELBINE [Suspect]
     Active Substance: VINORELBINE TARTRATE
     Indication: BREAST CANCER METASTATIC
     Dosage: 42 MG, UNK
     Route: 042
     Dates: start: 20100802, end: 20100831
  8. COMPARATOR TRASTUZUMAB [Suspect]
     Active Substance: TRASTUZUMAB
     Indication: BREAST CANCER METASTATIC
     Dosage: 131 MG, UNK
     Route: 042
     Dates: start: 20100802, end: 20100831
  9. AFINITOR [Suspect]
     Active Substance: EVEROLIMUS
     Indication: BREAST CANCER METASTATIC
     Dosage: 5 MG, QD
     Route: 048
     Dates: start: 20100802, end: 20100831
  10. COMPARATOR TRASTUZUMAB [Suspect]
     Active Substance: TRASTUZUMAB
     Dosage: 131 MG, UNK
     Route: 042
     Dates: start: 20101013

REACTIONS (4)
  - Thrombocytopenia [Recovered/Resolved]
  - Febrile neutropenia [Recovering/Resolving]
  - Epistaxis [Recovered/Resolved]
  - Neutropenia [Recovered/Resolved]

NARRATIVE: CASE EVENT DATE: 20100831
